FAERS Safety Report 4398984-3 (Version None)
Quarter: 2004Q2

REPORT INFORMATION
  Report Type: 
  Country: None (occurrence: None)
  Receive Date: 20040621
  Receipt Date: 20031119
  Transmission Date: 20050107
  Serious: Yes (Death)
  Sender: FDA-Public Use
  Company Number: USA-2002-0000029

PATIENT
  Age: 37 Year
  Sex: Male
  Weight: 111.1 kg

DRUGS (3)
  1. OXYCONTIN [Suspect]
     Dosage: ORAL
     Route: 048
  2. ETHANOL [Suspect]
  3. CAFFEINE [Suspect]

REACTIONS (2)
  - ACCIDENTAL OVERDOSE [None]
  - CARDIAC ARREST [None]
